FAERS Safety Report 15418334 (Version 1)
Quarter: 2018Q3

REPORT INFORMATION
  Report Type: Spontaneous
  Country: US (occurrence: US)
  Receive Date: 20180924
  Receipt Date: 20180924
  Transmission Date: 20181010
  Serious: No
  Sender: FDA-Public Use
  Company Number: US-MYLANLABS-2018M1067789

PATIENT
  Sex: Female
  Weight: 70 kg

DRUGS (1)
  1. ROCURONIUM BROMIDE INJECTION [Suspect]
     Active Substance: ROCURONIUM BROMIDE
     Indication: ANAESTHESIA
     Dosage: 50 MG/5ML, ONCE
     Route: 042
     Dates: start: 201809, end: 20180913

REACTIONS (1)
  - Drug ineffective [Recovered/Resolved]

NARRATIVE: CASE EVENT DATE: 201809
